FAERS Safety Report 7752362-5 (Version None)
Quarter: 2011Q3

REPORT INFORMATION
  Report Type: 
  Country: None (occurrence: None)
  Receive Date: 20110915
  Receipt Date: 20110902
  Transmission Date: 20111222
  Serious: Yes (Life-Threatening, Hospitalization, Other)
  Sender: FDA-Public Use
  Company Number: IN-KINGPHARMUSA00001-K201101031

PATIENT
  Age: 71 Year
  Sex: Female

DRUGS (9)
  1. LACTULOSE [Concomitant]
  2. ASPIRIN [Concomitant]
  3. PREDNISOLONE [Concomitant]
  4. SIMVASTATIN [Concomitant]
  5. ALTACE [Suspect]
     Dosage: 5 MG, UNK
     Route: 048
     Dates: start: 20110404, end: 20110811
  6. ACETAMINOPHEN [Concomitant]
  7. FUROSEMIDE [Concomitant]
  8. CLOPIDOGREL [Concomitant]
  9. BISOPROLOL FUMARATE [Concomitant]

REACTIONS (2)
  - MYOCARDIAL INFARCTION [None]
  - ANGIOEDEMA [None]
